FAERS Safety Report 12942271 (Version 1)
Quarter: 2016Q4

REPORT INFORMATION
  Report Type: Spontaneous
  Country: GB (occurrence: GB)
  Receive Date: 20161115
  Receipt Date: 20161115
  Transmission Date: 20170207
  Serious: Yes (Other)
  Sender: FDA-Public Use
  Company Number: GB-TEVA-710604ACC

PATIENT
  Age: 64 Year
  Sex: Male

DRUGS (9)
  1. LANSOPRAZOLE. [Concomitant]
     Active Substance: LANSOPRAZOLE
  2. SALBUTAMOL [Concomitant]
     Active Substance: ALBUTEROL
  3. BISOPROLOL [Concomitant]
     Active Substance: BISOPROLOL
  4. ASPIRIN. [Concomitant]
     Active Substance: ASPIRIN
  5. CO-AMILOFRUSE [Concomitant]
     Active Substance: AMILORIDE\FUROSEMIDE
  6. VERAPAMIL [Suspect]
     Active Substance: VERAPAMIL HYDROCHLORIDE
     Route: 048
  7. ATORVASTATIN [Concomitant]
     Active Substance: ATORVASTATIN
  8. QVAR [Concomitant]
     Active Substance: BECLOMETHASONE DIPROPIONATE
  9. FERROUS SULFATE. [Concomitant]
     Active Substance: FERROUS SULFATE

REACTIONS (5)
  - Syncope [Recovered/Resolved]
  - Hypotension [Unknown]
  - Somnolence [Unknown]
  - Accidental overdose [Unknown]
  - Malaise [Unknown]

NARRATIVE: CASE EVENT DATE: 20161018
